FAERS Safety Report 4388549-1 (Version None)
Quarter: 2004Q2

REPORT INFORMATION
  Report Type: 
  Country: None (occurrence: None)
  Receive Date: 20040622
  Receipt Date: 20040604
  Transmission Date: 20050107
  Serious: Yes (Life-Threatening, Hospitalization, Other)
  Sender: FDA-Public Use
  Company Number: 235905

PATIENT
  Age: 75 Year
  Sex: Male
  Weight: 83.3 kg

DRUGS (5)
  1. NOVOSEVEN [Suspect]
     Indication: CEREBRAL HAEMORRHAGE
     Dates: start: 20040307, end: 20040307
  2. CARDENE [Concomitant]
  3. PROPOFOL [Concomitant]
  4. MANNITOL [Concomitant]
  5. LABETALOL HCL [Concomitant]

REACTIONS (4)
  - CARDIAC ARREST [None]
  - LETHARGY [None]
  - MENTAL STATUS CHANGES [None]
  - MYOCARDIAL INFARCTION [None]
